FAERS Safety Report 7644192-X (Version None)
Quarter: 2011Q3

REPORT INFORMATION
  Report Type: 
  Country: None (occurrence: None)
  Receive Date: 20110729
  Receipt Date: 20110720
  Transmission Date: 20111222
  Serious: Yes (Hospitalization)
  Sender: FDA-Public Use
  Company Number: DE-ASTRAZENECA-2011SE43852

PATIENT
  Age: 29488 Day
  Sex: Male
  Weight: 72.2 kg

DRUGS (8)
  1. AMLODIPINE BESYLATE [Concomitant]
     Route: 048
  2. IRESSA [Suspect]
     Indication: NON-SMALL CELL LUNG CANCER
     Route: 048
  3. VIOFORM [Concomitant]
     Dosage: ONE APPLICATION DAILY
     Route: 003
     Dates: start: 20110427
  4. ASPIRIN [Concomitant]
     Route: 048
  5. PANTOPRAZOLE [Concomitant]
     Route: 048
  6. BISOPROLOL FUMARATE [Concomitant]
     Route: 048
  7. SIMVASTATIN [Concomitant]
     Route: 048
  8. ENALAPRIL MALEATE [Concomitant]
     Route: 048

REACTIONS (1)
  - SKIN NECROSIS [None]
